FAERS Safety Report 24603416 (Version 1)
Quarter: 2024Q4

REPORT INFORMATION
  Report Type: Spontaneous
  Country: US (occurrence: None)
  Receive Date: 20241109
  Receipt Date: 20241109
  Transmission Date: 20250114
  Serious: Yes (Disabling)
  Sender: Public
  Company Number: None

PATIENT
  Age: 29 Year
  Sex: Female
  Weight: 63.9 kg

DRUGS (5)
  1. DUPIXENT [Suspect]
     Active Substance: DUPILUMAB
     Dates: start: 20240914, end: 20241102
  2. TYLENOL [Concomitant]
  3. ROBAXIN [Concomitant]
  4. PREDNISONE [Concomitant]
     Active Substance: PREDNISONE
  5. MINERALS\VITAMINS [Concomitant]
     Active Substance: MINERALS\VITAMINS

REACTIONS (3)
  - Back pain [None]
  - Musculoskeletal stiffness [None]
  - Quality of life decreased [None]

NARRATIVE: CASE EVENT DATE: 20241107
